FAERS Safety Report 7831089-5 (Version None)
Quarter: 2011Q4

REPORT INFORMATION
  Report Type: 
  Country: None (occurrence: None)
  Receive Date: 20111021
  Receipt Date: 20111018
  Transmission Date: 20120403
  Serious: Yes (Death, Hospitalization)
  Sender: FDA-Public Use
  Company Number: PHHY2011SG73486

PATIENT
  Age: 95 Year
  Sex: Female

DRUGS (12)
  1. AVELOX [Concomitant]
     Dosage: UNK UKN, UNK
  2. EXELON [Suspect]
     Indication: DEMENTIA
     Dosage: 4.6MG/24HR
     Route: 062
  3. COMBIVENT [Concomitant]
     Dosage: UNK UKN, UNK
  4. VASTAREL [Concomitant]
     Dosage: UNK UKN, UNK
  5. LACTULOSE [Concomitant]
     Dosage: UNK UKN, UNK
  6. ARCOXIA [Concomitant]
     Dosage: UNK UKN, UNK
  7. PULMICORT [Concomitant]
     Dosage: UNK UKN, UNK
  8. EXELON [Suspect]
     Dosage: 4.6 MG/24H
     Route: 062
     Dates: start: 20110807
  9. SEROQUEL [Suspect]
     Dosage: 12.5 MG, BID
  10. ACETYLCYSTEINE [Concomitant]
     Dosage: UNK UKN, UNK
  11. FOSAMAX [Concomitant]
     Dosage: UNK UKN, UNK
  12. ZANTAC [Concomitant]
     Dosage: UNK UKN, UNK

REACTIONS (9)
  - CIRCULATORY COLLAPSE [None]
  - PULSELESS ELECTRICAL ACTIVITY [None]
  - HYPOXIC-ISCHAEMIC ENCEPHALOPATHY [None]
  - AGITATION [None]
  - CARDIAC ARREST [None]
  - PNEUMONIA [None]
  - UNRESPONSIVE TO STIMULI [None]
  - RESTLESSNESS [None]
  - STUPOR [None]
